FAERS Safety Report 6011512-1 (Version None)
Quarter: 2008Q4

REPORT INFORMATION
  Report Type: 
  Country: None (occurrence: None)
  Receive Date: 20081218
  Receipt Date: 19950329
  Transmission Date: 20090506
  Serious: Yes (Death, Other)
  Sender: FDA-Public Use
  Company Number: FR-ROCHE-96323

PATIENT
  Sex: Male
  Weight: 82 kg

DRUGS (2)
  1. RIVOTRIL [Suspect]
     Indication: HERPES ZOSTER
     Dosage: IN THE EVENING
     Route: 048
  2. FONZYLANE [Concomitant]
     Route: 065

REACTIONS (3)
  - CEREBROVASCULAR ACCIDENT [None]
  - COMA [None]
  - DEATH [None]
